FAERS Safety Report 21017335 (Version 1)
Quarter: 2022Q2

REPORT INFORMATION
  Report Type: Spontaneous
  Country: US (occurrence: US)
  Receive Date: 20220628
  Receipt Date: 20220628
  Transmission Date: 20220721
  Serious: Yes (Other)
  Sender: FDA-Public Use
  Company Number: US-PFIZER INC-PV202200006507

PATIENT
  Age: 17 Year
  Sex: Female

DRUGS (3)
  1. LIOTHYRONINE SODIUM [Suspect]
     Active Substance: LIOTHYRONINE SODIUM
     Indication: Drug therapy enhancement
     Dosage: 25 UG, DAILY
  2. LIOTHYRONINE SODIUM [Suspect]
     Active Substance: LIOTHYRONINE SODIUM
     Dosage: 50 UG, DAILY
  3. VENLAFAXINE [Concomitant]
     Active Substance: VENLAFAXINE HYDROCHLORIDE
     Indication: Depression
     Dosage: UNK

REACTIONS (2)
  - Hyperthyroidism [Recovered/Resolved]
  - Off label use [Unknown]
